FAERS Safety Report 11796928 (Version 2)
Quarter: 2016Q1

REPORT INFORMATION
  Report Type: Report from Study
  Country: US (occurrence: US)
  Receive Date: 20151203
  Receipt Date: 20160208
  Transmission Date: 20160525
  Serious: Yes (Other)
  Sender: FDA-Public Use
  Company Number: PHEH2015US023147

PATIENT
  Age: 56 Year
  Sex: Female
  Weight: 87.4 kg

DRUGS (7)
  1. ATORVASTATIN [Concomitant]
     Active Substance: ATORVASTATIN
     Indication: PRODUCT USED FOR UNKNOWN INDICATION
     Dosage: UNK
     Route: 065
  2. GILENYA [Suspect]
     Active Substance: FINGOLIMOD HYDROCHLORIDE
     Dosage: 0.5 MG, UNK
     Route: 048
     Dates: start: 20151230
  3. COENZYME Q10 [Concomitant]
     Active Substance: UBIDECARENONE
     Indication: PRODUCT USED FOR UNKNOWN INDICATION
     Dosage: UNK
     Route: 065
  4. MULTI VITAMIN [Concomitant]
     Active Substance: VITAMINS
     Indication: SUPPLEMENTATION THERAPY
     Dosage: UNK
     Route: 065
  5. GILENYA [Suspect]
     Active Substance: FINGOLIMOD HYDROCHLORIDE
     Indication: MULTIPLE SCLEROSIS
     Dosage: 0.5 MG, QD
     Route: 048
     Dates: start: 2012, end: 2015
  6. DALFAMPRIDINE [Concomitant]
     Active Substance: DALFAMPRIDINE
     Indication: PRODUCT USED FOR UNKNOWN INDICATION
     Route: 065
  7. FLAXSEED [Concomitant]
     Active Substance: FLAX SEED
     Indication: PRODUCT USED FOR UNKNOWN INDICATION
     Dosage: UNK
     Route: 065

REACTIONS (26)
  - Muscle tightness [Unknown]
  - Paraesthesia [Unknown]
  - Dysphagia [Unknown]
  - Insomnia [Unknown]
  - Fatigue [Unknown]
  - Micturition urgency [Unknown]
  - Anal incontinence [Unknown]
  - Muscular weakness [Unknown]
  - Hypertonia [Unknown]
  - Central nervous system lesion [Unknown]
  - Macular degeneration [Unknown]
  - Aphasia [Unknown]
  - Peroneal nerve palsy [Unknown]
  - Vitamin B12 increased [Unknown]
  - Upper motor neurone lesion [Unknown]
  - Muscle spasms [Unknown]
  - Memory impairment [Unknown]
  - Dysarthria [Unknown]
  - Aspartate aminotransferase increased [Unknown]
  - Limb discomfort [Unknown]
  - Urinary incontinence [Unknown]
  - Hypoaesthesia [Unknown]
  - White blood cell count decreased [Unknown]
  - Alanine aminotransferase increased [Unknown]
  - Romberg test positive [Unknown]
  - Saccadic eye movement [Unknown]

NARRATIVE: CASE EVENT DATE: 20140502
